FAERS Safety Report 11216393 (Version 5)
Quarter: 2016Q1

REPORT INFORMATION
  Report Type: Spontaneous
  Country: US (occurrence: US)
  Receive Date: 20150624
  Receipt Date: 20160128
  Transmission Date: 20160525
  Serious: Yes (Hospitalization, Other)
  Sender: FDA-Public Use
  Company Number: US-GLAXOSMITHKLINE-US2015GSK089041

PATIENT
  Age: 75 Year
  Sex: Female

DRUGS (2)
  1. VENTOLIN HFA [Suspect]
     Active Substance: ALBUTEROL SULFATE
     Indication: CHRONIC OBSTRUCTIVE PULMONARY DISEASE
     Dosage: UNK, U
  2. VENTOLIN HFA [Suspect]
     Active Substance: ALBUTEROL SULFATE
     Dosage: 4 PUFF(S), QID
     Route: 055
     Dates: start: 2000

REACTIONS (11)
  - Stent placement [Recovered/Resolved]
  - Gait disturbance [Unknown]
  - Gangrene [Recovered/Resolved]
  - Fall [Unknown]
  - Upper limb fracture [Recovered/Resolved]
  - Cardiac pacemaker replacement [Recovered/Resolved]
  - Meniscus injury [Unknown]
  - Physiotherapy [Unknown]
  - Toe amputation [Recovered/Resolved]
  - Vascular graft [Unknown]
  - Vascular stent insertion [Recovered/Resolved]

NARRATIVE: CASE EVENT DATE: 20140729
